FAERS Safety Report 7774204-4 (Version None)
Quarter: 2011Q3

REPORT INFORMATION
  Report Type: 
  Country: None (occurrence: None)
  Receive Date: 20110923
  Receipt Date: 20110914
  Transmission Date: 20111222
  Serious: Yes (Other)
  Sender: FDA-Public Use
  Company Number: JP-AMGEN-JPNSP2011033192

PATIENT
  Sex: Female

DRUGS (3)
  1. METHOTREXATE SODIUM [Suspect]
     Dosage: UNK
  2. ENBREL [Suspect]
     Indication: RHEUMATOID ARTHRITIS
     Dosage: 50 MG, WEEKLY
     Route: 058
     Dates: start: 20110301
  3. REMICADE [Concomitant]
     Dosage: UNK UNK, UNK

REACTIONS (3)
  - HEPATIC FUNCTION ABNORMAL [None]
  - RHEUMATOID FACTOR INCREASED [None]
  - DRUG INEFFECTIVE [None]
